FAERS Safety Report 14695756 (Version 1)
Quarter: 2018Q1

REPORT INFORMATION
  Report Type: Spontaneous
  Country: FR (occurrence: FR)
  Receive Date: 20180329
  Receipt Date: 20180329
  Transmission Date: 20180509
  Serious: Yes (Death, Other)
  Sender: FDA-Public Use
  Company Number: FR-GILEAD-2018-0328319

PATIENT
  Age: 70 Year
  Sex: Female
  Weight: 90 kg

DRUGS (22)
  1. HARVONI [Suspect]
     Active Substance: LEDIPASVIR\SOFOSBUVIR
     Indication: CHRONIC HEPATITIS C
     Dosage: 1 DF, UNK
     Route: 048
     Dates: start: 20160125, end: 20160417
  2. PARACETAMOL [Concomitant]
     Active Substance: ACETAMINOPHEN
     Route: 065
  3. FORTIMEL [Concomitant]
     Active Substance: DIETARY SUPPLEMENT
  4. LEXOMIL [Concomitant]
     Active Substance: BROMAZEPAM
  5. LANSOPRAZOLE. [Suspect]
     Active Substance: LANSOPRAZOLE
     Indication: PRODUCT USED FOR UNKNOWN INDICATION
     Dosage: 30 MG, UNK
     Route: 065
     Dates: start: 20160418
  6. MAG 2                              /00454301/ [Suspect]
     Active Substance: MAGNESIUM CARBONATE
     Indication: PRODUCT USED FOR UNKNOWN INDICATION
     Route: 065
  7. ATARAX [Concomitant]
     Active Substance: HYDROXYZINE HYDROCHLORIDE
  8. MONOTILDIEM [Concomitant]
     Active Substance: DILTIAZEM
  9. METFORMINE                         /00082701/ [Concomitant]
     Active Substance: METFORMIN HYDROCHLORIDE
  10. STILNOX [Concomitant]
     Active Substance: ZOLPIDEM TARTRATE
     Route: 065
  11. TRAMADOL. [Concomitant]
     Active Substance: TRAMADOL
     Route: 065
  12. LYSANXIA [Concomitant]
     Active Substance: PRAZEPAM
  13. ASPEGIC                            /00002701/ [Concomitant]
     Active Substance: ASPIRIN
  14. MOLSIDOMINE [Concomitant]
     Active Substance: MOLSIDOMINE
     Dosage: 6 MG, UNK
     Route: 065
  15. COLCHICINE OPOCALCIUM [Suspect]
     Active Substance: COLCHICINE
     Indication: FAMILIAL MEDITERRANEAN FEVER
     Dosage: 1 MG/3 DAYS A WEEK
     Route: 048
     Dates: start: 20160406, end: 20160412
  16. COLCHICINE OPOCALCIUM [Suspect]
     Active Substance: COLCHICINE
     Dosage: 2 MG, QD
     Route: 048
     Dates: start: 20160419, end: 20160422
  17. MOLSIDOMINE [Concomitant]
     Active Substance: MOLSIDOMINE
  18. SIMVASTATINE [Concomitant]
     Active Substance: SIMVASTATIN
  19. XANAX [Concomitant]
     Active Substance: ALPRAZOLAM
  20. LASILIX                            /00032601/ [Suspect]
     Active Substance: FUROSEMIDE
     Indication: PRODUCT USED FOR UNKNOWN INDICATION
     Route: 065
  21. SPASFON                            /00765801/ [Concomitant]
     Active Substance: PHLOROGLUCINOL\1,3,5-TRIMETHOXYBENZENE
  22. CO-DIOVAN [Concomitant]
     Active Substance: HYDROCHLOROTHIAZIDE\VALSARTAN

REACTIONS (10)
  - Pancytopenia [Fatal]
  - Diarrhoea [Fatal]
  - Bone marrow failure [Fatal]
  - Septic shock [Fatal]
  - Dehydration [Fatal]
  - Toxicity to various agents [Fatal]
  - Pyrexia [Fatal]
  - Coma [Fatal]
  - Renal failure [Fatal]
  - Vomiting [Fatal]

NARRATIVE: CASE EVENT DATE: 20160401
